FAERS Safety Report 21014679 (Version 1)
Quarter: 2022Q2

REPORT INFORMATION
  Report Type: Report from Study
  Country: CA (occurrence: CA)
  Receive Date: 20220628
  Receipt Date: 20220628
  Transmission Date: 20220720
  Serious: Yes (Other)
  Sender: FDA-Public Use
  Company Number: CA-ABBVIE-22K-028-4365657-00

PATIENT
  Sex: Female

DRUGS (1)
  1. HUMIRA [Suspect]
     Active Substance: ADALIMUMAB
     Indication: Rheumatoid arthritis
     Route: 058
     Dates: start: 20191126

REACTIONS (6)
  - Rheumatoid arthritis [Unknown]
  - Osteoarthritis [Unknown]
  - Foot deformity [Unknown]
  - Musculoskeletal disorder [Not Recovered/Not Resolved]
  - Diplopia [Unknown]
  - Injection site pain [Unknown]
